FAERS Safety Report 7829335-7 (Version None)
Quarter: 2011Q4

REPORT INFORMATION
  Report Type: 
  Country: None (occurrence: None)
  Receive Date: 20111020
  Receipt Date: 20111019
  Transmission Date: 20120403
  Serious: Yes (Other)
  Sender: FDA-Public Use
  Company Number: CA-ROXANE LABORATORIES, INC.-2011-RO-01509RO

PATIENT

DRUGS (1)
  1. MIDAZOLAM HCL [Suspect]
     Route: 042

REACTIONS (1)
  - TONIC CONVULSION [None]
